FAERS Safety Report 14196255 (Version 3)
Quarter: 2017Q4

REPORT INFORMATION
  Report Type: Spontaneous
  Country: US (occurrence: US)
  Receive Date: 20171116
  Receipt Date: 20171204
  Transmission Date: 20180321
  Serious: Yes (Death, Hospitalization, Other)
  Sender: FDA-Public Use
  Company Number: US-JNJFOC-20171118299

PATIENT
  Age: 68 Year
  Sex: Male

DRUGS (4)
  1. IMBRUVICA [Suspect]
     Active Substance: IBRUTINIB
     Indication: CHRONIC LYMPHOCYTIC LEUKAEMIA
     Route: 048
     Dates: start: 20170213
  2. IMBRUVICA [Suspect]
     Active Substance: IBRUTINIB
     Indication: CHRONIC LYMPHOCYTIC LEUKAEMIA
     Route: 048
     Dates: start: 20170302
  3. IMBRUVICA [Suspect]
     Active Substance: IBRUTINIB
     Indication: CHRONIC LYMPHOCYTIC LEUKAEMIA
     Route: 048
     Dates: start: 20160711, end: 20170206
  4. OBINUTUZUMAB. [Suspect]
     Active Substance: OBINUTUZUMAB
     Indication: CHRONIC LYMPHOCYTIC LEUKAEMIA
     Route: 048
     Dates: start: 20160607, end: 20161205

REACTIONS (14)
  - Sepsis [Fatal]
  - Colitis ischaemic [Not Recovered/Not Resolved]
  - Atrial fibrillation [Recovered/Resolved]
  - Deep vein thrombosis [Unknown]
  - Abdominal abscess [Unknown]
  - Lumbar radiculopathy [Unknown]
  - Renal failure [Unknown]
  - Peritonitis [Unknown]
  - Cellulitis [Unknown]
  - Pneumonia [Unknown]
  - Neutrophil count decreased [Not Recovered/Not Resolved]
  - Clostridial infection [Unknown]
  - Necrotising fasciitis [Unknown]
  - Infectious colitis [Recovered/Resolved]

NARRATIVE: CASE EVENT DATE: 2017
